FAERS Safety Report 7472908-4 (Version None)
Quarter: 2011Q1

REPORT INFORMATION
  Report Type: 
  Country: None (occurrence: None)
  Receive Date: 20110302
  Receipt Date: 20101008
  Transmission Date: 20110831
  Serious: Yes (Hospitalization, Other)
  Sender: FDA-Public Use
  Company Number: 163-21880-10101100

PATIENT
  Age: 72 Year
  Sex: Male

DRUGS (2)
  1. REVLIMID [Suspect]
     Indication: LYMPHOMA
     Dosage: 15 MG, 1 IN 1 D, PO; 10 MG, DAILY FOR 21 DAYS EVERY 28 DAYS, PO
     Route: 048
     Dates: start: 20100201
  2. REVLIMID [Suspect]
     Indication: LYMPHOMA
     Dosage: 15 MG, 1 IN 1 D, PO; 10 MG, DAILY FOR 21 DAYS EVERY 28 DAYS, PO
     Route: 048
     Dates: start: 20091201

REACTIONS (3)
  - HERNIA [None]
  - MALIGNANT NEOPLASM OF EYE [None]
  - SINUSITIS [None]
